FAERS Safety Report 11781080 (Version 2)
Quarter: 2016Q4

REPORT INFORMATION
  Report Type: Spontaneous
  Country: US (occurrence: US)
  Receive Date: 20151126
  Receipt Date: 20161209
  Transmission Date: 20170206
  Serious: Yes (Other)
  Sender: FDA-Public Use
  Company Number: US-ASTRAZENECA-2015SF18290

PATIENT
  Sex: Male

DRUGS (2)
  1. UNSPECIFIED [Concomitant]
     Active Substance: UNSPECIFIED INGREDIENT
     Dosage: 17 PILLS
  2. BRILINTA [Suspect]
     Active Substance: TICAGRELOR
     Indication: ACUTE CORONARY SYNDROME
     Route: 048
     Dates: start: 2014

REACTIONS (4)
  - Fatigue [Unknown]
  - Stress [Unknown]
  - Choking [Unknown]
  - Myocardial infarction [Unknown]
